FAERS Safety Report 8193438 (Version 4)
Quarter: 2012Q4

REPORT INFORMATION
  Report Type: 
  Country: DK (occurrence: DK)
  Receive Date: 20111021
  Receipt Date: 20121205
  Transmission Date: 20130627
  Serious: Yes (Other)
  Sender: FDA-Public Use
  Company Number: DK-PFIZER INC-2011247472

PATIENT
  Age: 59 Year
  Sex: Male

DRUGS (2)
  1. CHAMPIX [Suspect]
     Indication: TOBACCO USER
     Dosage: 0.5mg+1mg daily, starter package
     Route: 048
     Dates: start: 20110713, end: 20110816
  2. IMADRAX [Interacting]
     Indication: PNEUMONIA
     Dosage: 1000 mg, 2x/day
     Route: 048
     Dates: start: 20110708, end: 20110715

REACTIONS (4)
  - Drug interaction [Recovering/Resolving]
  - Drug-induced liver injury [Recovering/Resolving]
  - Blood immunoglobulin G decreased [Unknown]
  - Blood immunoglobulin M decreased [Unknown]
